FAERS Safety Report 18076401 (Version 2)
Quarter: 2020Q4

REPORT INFORMATION
  Report Type: Spontaneous
  Country: US (occurrence: US)
  Receive Date: 20200728
  Receipt Date: 20201023
  Transmission Date: 20210113
  Serious: No
  Sender: FDA-Public Use
  Company Number: US-SA-2020SA188730

PATIENT

DRUGS (33)
  1. HYOSCYAMINE SULFATE. [Concomitant]
     Active Substance: HYOSCYAMINE SULFATE
  2. TORSEMIDE. [Concomitant]
     Active Substance: TORSEMIDE
  3. GABAPENTIN. [Concomitant]
     Active Substance: GABAPENTIN
  4. NASONEX [Concomitant]
     Active Substance: MOMETASONE FUROATE
  5. PRIMIDONE. [Concomitant]
     Active Substance: PRIMIDONE
  6. NITROGLYCERINE [Concomitant]
     Active Substance: NITROGLYCERIN
  7. XOPENEX [Concomitant]
     Active Substance: LEVALBUTEROL HYDROCHLORIDE
  8. FLONASE [Concomitant]
     Active Substance: FLUTICASONE PROPIONATE
  9. PROBIOTICS NOS [Concomitant]
     Active Substance: PROBIOTICS NOS
  10. BUSPIRONE HCL [Concomitant]
     Active Substance: BUSPIRONE HYDROCHLORIDE
  11. CETIRIZINE HCL [Concomitant]
     Active Substance: CETIRIZINE HYDROCHLORIDE
  12. AUBAGIO [Suspect]
     Active Substance: TERIFLUNOMIDE
     Indication: MULTIPLE SCLEROSIS
     Dosage: 14 MG, QD
     Route: 048
     Dates: start: 20200401
  13. LEVOTHYROXINE SODIUM. [Concomitant]
     Active Substance: LEVOTHYROXINE SODIUM
  14. PULMICORT FLEXHALER [Concomitant]
     Active Substance: BUDESONIDE
  15. NYSTATIN. [Concomitant]
     Active Substance: NYSTATIN
  16. LAC-HYDRIN [Concomitant]
     Active Substance: AMMONIUM LACTATE
  17. PROTONIX [OMEPRAZOLE] [Concomitant]
     Active Substance: OMEPRAZOLE
  18. DICYCLOMINE HCL [Concomitant]
     Active Substance: DICYCLOMINE HYDROCHLORIDE
  19. VITAMIN B12 + FOLIC ACID [Concomitant]
     Active Substance: CYANOCOBALAMIN\FOLIC ACID
  20. ASPIRIN [ACETYLSALICYLIC ACID] [Concomitant]
     Active Substance: ASPIRIN
  21. DOCUSATE CALCIUM. [Concomitant]
     Active Substance: DOCUSATE CALCIUM
  22. WARFARIN SODIUM. [Concomitant]
     Active Substance: WARFARIN SODIUM
  23. ALENDRONATE SODIUM. [Concomitant]
     Active Substance: ALENDRONATE SODIUM
  24. DUODERM CGF [CARMELLOSE SODIUM] [Concomitant]
  25. FAMOTIDINE. [Concomitant]
     Active Substance: FAMOTIDINE
  26. LANTUS [Concomitant]
     Active Substance: INSULIN GLARGINE
  27. HUMALOG [Concomitant]
     Active Substance: INSULIN LISPRO
  28. KEPPRA [Concomitant]
     Active Substance: LEVETIRACETAM
  29. ZOFRAN [Concomitant]
     Active Substance: ONDANSETRON HYDROCHLORIDE
  30. OCUFLOX [Concomitant]
     Active Substance: OFLOXACIN
  31. BYSTOLIC [Concomitant]
     Active Substance: NEBIVOLOL HYDROCHLORIDE
  32. SINGULAIR [Concomitant]
     Active Substance: MONTELUKAST SODIUM
  33. SIMVASTATIN. [Concomitant]
     Active Substance: SIMVASTATIN

REACTIONS (3)
  - Asthenia [Unknown]
  - Rash [Unknown]
  - Pain in extremity [Unknown]

NARRATIVE: CASE EVENT DATE: 20200718
